FAERS Safety Report 17636349 (Version 1)
Quarter: 2020Q2

REPORT INFORMATION
  Report Type: Spontaneous
  Country: DE (occurrence: DE)
  Receive Date: 20200407
  Receipt Date: 20200407
  Transmission Date: 20200713
  Serious: Yes (Hospitalization)
  Sender: FDA-Public Use
  Company Number: DE-SUN PHARMACEUTICAL INDUSTRIES LTD-2020R1-242549

PATIENT
  Age: 63 Year
  Sex: Female
  Weight: 93 kg

DRUGS (2)
  1. METHOTREXATE. [Suspect]
     Active Substance: METHOTREXATE
     Indication: RHEUMATOID ARTHRITIS
     Dosage: 15 MILLIGRAM, WEEKLY
     Route: 065
  2. LEFLUNOMIDE. [Suspect]
     Active Substance: LEFLUNOMIDE
     Indication: RHEUMATOID ARTHRITIS
     Dosage: 2 MILLIGRAM, DAILY
     Route: 065

REACTIONS (4)
  - Respiratory alkalosis [Recovering/Resolving]
  - Thrombotic microangiopathy [Recovering/Resolving]
  - Liver injury [Recovering/Resolving]
  - Acute hepatic failure [Recovering/Resolving]
